FAERS Safety Report 17311388 (Version 2)
Quarter: 2021Q1

REPORT INFORMATION
  Report Type: Spontaneous
  Country: US (occurrence: US)
  Receive Date: 20200123
  Receipt Date: 20210115
  Transmission Date: 20210419
  Serious: No
  Sender: FDA-Public Use
  Company Number: US-ROCHE-2392583

PATIENT
  Sex: Female

DRUGS (2)
  1. RITUXAN [Suspect]
     Active Substance: RITUXIMAB
     Indication: CARDIAC SARCOIDOSIS
     Dosage: CYCLE 2 WEEKS APART EVERY 6 MONTHS ?ALSO RECEIVED ON 31/DEC/2018 AND JAN/2019
     Route: 042
     Dates: start: 201806
  2. RITUXAN [Suspect]
     Active Substance: RITUXIMAB
     Indication: PULMONARY SARCOIDOSIS

REACTIONS (3)
  - Intentional product use issue [Unknown]
  - No adverse event [Unknown]
  - Off label use [Unknown]
